FAERS Safety Report 22356933 (Version 5)
Quarter: 2024Q2

REPORT INFORMATION
  Report Type: Report from Study
  Country: US (occurrence: US)
  Receive Date: 20230523
  Receipt Date: 20240425
  Transmission Date: 20240715
  Serious: Yes (Other)
  Sender: FDA-Public Use
  Company Number: US-ABBVIE-5175849

PATIENT
  Sex: Male

DRUGS (3)
  1. IMBRUVICA [Suspect]
     Active Substance: IBRUTINIB
     Indication: Waldenstrom^s macroglobulinaemia
     Route: 048
     Dates: start: 20211222, end: 202307
  2. IMBRUVICA [Suspect]
     Active Substance: IBRUTINIB
     Indication: Waldenstrom^s macroglobulinaemia
     Dosage: FIRST ADMIN DATE: 2023
     Route: 048
     Dates: end: 202309
  3. IMBRUVICA [Suspect]
     Active Substance: IBRUTINIB
     Indication: Waldenstrom^s macroglobulinaemia
     Dosage: FOR 2 DAYS
     Route: 048
     Dates: start: 202309

REACTIONS (7)
  - Cholecystectomy [Recovering/Resolving]
  - Sinusitis [Recovering/Resolving]
  - Malignant melanoma [Unknown]
  - Heart rate increased [Recovering/Resolving]
  - Surgery [Recovered/Resolved]
  - Dental care [Unknown]
  - Gastroenteritis viral [Recovering/Resolving]

NARRATIVE: CASE EVENT DATE: 20230101
